FAERS Safety Report 7797165-0 (Version None)
Quarter: 2011Q4

REPORT INFORMATION
  Report Type: 
  Country: None (occurrence: None)
  Receive Date: 20111005
  Receipt Date: 20110929
  Transmission Date: 20120403
  Serious: Yes (Life-Threatening, Hospitalization)
  Sender: FDA-Public Use
  Company Number: NL-GENZYME-CLOF-1001798

PATIENT
  Sex: Male
  Weight: 80 kg

DRUGS (7)
  1. FUROSEMIDE [Concomitant]
     Indication: FLUID RETENTION
  2. TENOFOVIR DISOPROXIL FUMARATE [Concomitant]
     Indication: HEPATITIS B
     Dosage: 245 MG, QDX7
     Route: 048
     Dates: start: 20110905, end: 20110911
  3. IDARUBICIN HCL [Suspect]
     Indication: ACUTE LEUKAEMIA
     Dosage: 24 MG, UNK
     Route: 042
     Dates: start: 20110906, end: 20110908
  4. CYTARABINE [Suspect]
     Indication: ACUTE LEUKAEMIA
     Dosage: 400 MG, UNK
     Route: 042
     Dates: start: 20110906, end: 20110912
  5. EVOLTRA [Suspect]
     Indication: ACUTE LEUKAEMIA
     Dosage: 20 MG, UNK
     Route: 042
     Dates: start: 20110906, end: 20110910
  6. FUROSEMIDE [Concomitant]
     Indication: OEDEMA
     Dosage: 40 MG, QDX3
     Route: 042
     Dates: start: 20110909, end: 20110911
  7. TENOFOVIR DISOPROXIL FUMARATE [Concomitant]
     Indication: HEPATITIS C

REACTIONS (1)
  - VENTRICULAR FIBRILLATION [None]
